FAERS Safety Report 4319086-8 (Version None)
Quarter: 2004Q1

REPORT INFORMATION
  Report Type: 
  Country: None (occurrence: None)
  Receive Date: 20040318
  Receipt Date: 20040318
  Transmission Date: 20041129
  Serious: Yes (Hospitalization)
  Sender: FDA-Public Use
  Company Number: None

PATIENT
  Sex: Female
  Weight: 83 kg

DRUGS (3)
  1. DOXORUBICIN HCL [Suspect]
     Indication: ENDOMETRIAL CANCER
     Dosage: 40MG/M2 EVERY 4 WEEKS INTRAVENOUS
     Route: 042
     Dates: start: 19981118, end: 19990118
  2. TENORMIN [Concomitant]
  3. DYAZIDE [Concomitant]

REACTIONS (9)
  - ACUTE PRERENAL FAILURE [None]
  - ANORECTAL DISORDER [None]
  - DECREASED APPETITE [None]
  - DEHYDRATION [None]
  - DIZZINESS [None]
  - ENDOMETRIAL CANCER RECURRENT [None]
  - GROIN PAIN [None]
  - HYPOVOLAEMIA [None]
  - RECTAL HAEMORRHAGE [None]
